FAERS Safety Report 8478463-4 (Version None)
Quarter: 2012Q2

REPORT INFORMATION
  Report Type: 
  Country: None (occurrence: None)
  Receive Date: 20120615
  Receipt Date: 20120607
  Transmission Date: 20120825
  Serious: Yes (Hospitalization)
  Sender: FDA-Public Use
  Company Number: 2012SP003815

PATIENT
  Age: 40 Year
  Sex: Female

DRUGS (4)
  1. IMA950 (MULTI-PEPTIDE VACCINE) [Concomitant]
  2. TEMOZOLOMIDE [Concomitant]
  3. DEXAMETHASONE [Suspect]
     Indication: PRODUCT USED FOR UNKNOWN INDICATION
  4. GM-CSF (OTHER MFR) [Concomitant]

REACTIONS (4)
  - PRESYNCOPE [None]
  - VIRAL UPPER RESPIRATORY TRACT INFECTION [None]
  - INJECTION SITE ERYTHEMA [None]
  - ORAL CANDIDIASIS [None]
